FAERS Safety Report 12465007 (Version 1)
Quarter: 2016Q2

REPORT INFORMATION
  Report Type: Report from Study
  Country: NZ (occurrence: NZ)
  Receive Date: 20160614
  Receipt Date: 20160614
  Transmission Date: 20160815
  Serious: Yes (Hospitalization)
  Sender: FDA-Public Use
  Company Number: NZ-TAKEDA-2016TUS009532

PATIENT
  Age: 64 Year
  Sex: Male
  Weight: 90 kg

DRUGS (5)
  1. PHARMACARE PARACETAMOL [Concomitant]
     Dosage: 1 G, UNK
  2. VEDOLIZUMAB [Suspect]
     Active Substance: VEDOLIZUMAB
     Indication: COLITIS ULCERATIVE
     Dosage: 300 MG, UNK
     Route: 042
     Dates: start: 20120906
  3. PRADAXA [Concomitant]
     Active Substance: DABIGATRAN ETEXILATE MESYLATE
     Indication: ATRIAL FIBRILLATION
     Dosage: 150 MG, BID
     Route: 048
  4. APO-DILTIAZEM [Concomitant]
     Dosage: 240 MG, QD
  5. APO-DILTIAZEM [Concomitant]
     Indication: ATRIAL FIBRILLATION
     Dosage: 120 MG, QD

REACTIONS (1)
  - Bursitis [Recovering/Resolving]

NARRATIVE: CASE EVENT DATE: 20160529
